FAERS Safety Report 9234676 (Version 3)
Quarter: 2013Q3

REPORT INFORMATION
  Report Type: Spontaneous
  Country: US (occurrence: US)
  Receive Date: 20130416
  Receipt Date: 20130723
  Transmission Date: 20140515
  Serious: Yes (Hospitalization)
  Sender: FDA-Public Use
  Company Number: US-ASTRAZENECA-2013SE23616

PATIENT
  Age: 15 Year
  Sex: Female
  Weight: 63.5 kg

DRUGS (12)
  1. SYMBICORT PMDI [Suspect]
     Indication: ASTHMA
     Dosage: 80/4.5 MCG TWO PUFFS TWO TIMES A DAY
     Route: 055
     Dates: start: 200910
  2. SYMBICORT PMDI [Suspect]
     Indication: ASTHMA
     Dosage: 80/4.5 MCG ONE PUFF TWO TIMES A DAY
     Route: 055
     Dates: start: 20130301
  3. SYMBICORT PMDI [Suspect]
     Indication: ASTHMA
     Dosage: 80/4.5 MCG ONE PUFF DAILY
     Route: 055
     Dates: end: 20130329
  4. SINGULAIR [Suspect]
     Indication: WHEEZING
     Route: 065
     Dates: end: 200910
  5. XOPENEX [Concomitant]
     Indication: PROPHYLAXIS
     Dosage: ONCE OR TWICE A MONTH PRN
     Route: 055
  6. DEPLEN [Concomitant]
     Dates: start: 20130216
  7. STRONG B VITAMIN [Concomitant]
     Dates: start: 20130216
  8. MULTI VITAMIN [Concomitant]
     Dates: start: 20130216
  9. MINERAL SUPPLEMENT [Concomitant]
     Dates: start: 20130216
  10. VITAMIN A [Concomitant]
     Dates: start: 20130216
  11. ZINC [Concomitant]
     Dates: start: 20130216
  12. ULTIMATE OMEGA BY NORDIC [Concomitant]
     Dosage: 1280 TWO TIMES A DAY
     Dates: start: 20130216

REACTIONS (17)
  - Major depression [Unknown]
  - Insomnia [Recovering/Resolving]
  - Anxiety [Unknown]
  - Heart rate irregular [Unknown]
  - Panic attack [Unknown]
  - Blood electrolytes abnormal [Unknown]
  - Enzyme abnormality [Unknown]
  - Renal impairment [Unknown]
  - Cardiac function test abnormal [Unknown]
  - Fatigue [Not Recovered/Not Resolved]
  - Tension [Recovering/Resolving]
  - Heart rate increased [Unknown]
  - Depression [Not Recovered/Not Resolved]
  - Affective disorder [Recovered/Resolved]
  - Mood swings [Recovered/Resolved]
  - Crying [Recovered/Resolved]
  - Aggression [Recovered/Resolved]
